FAERS Safety Report 5020071-1 (Version None)
Quarter: 2006Q2

REPORT INFORMATION
  Report Type: 
  Country: None (occurrence: None)
  Receive Date: 20060607
  Receipt Date: 20060531
  Transmission Date: 20061013
  Serious: Yes (Hospitalization)
  Sender: FDA-Public Use
  Company Number: JP-JPN-A200601819

PATIENT
  Age: 55 Year
  Sex: Female

DRUGS (15)
  1. SEREVENT [Suspect]
     Indication: ASTHMA
     Dosage: 100MCG TWICE PER DAY
     Route: 055
     Dates: start: 20060104, end: 20060531
  2. COLONEL [Suspect]
     Dosage: 1.2G THREE TIMES PER DAY
     Route: 048
  3. FLUTIDE DISKUS [Concomitant]
     Dosage: 2U TWICE PER DAY
     Route: 055
  4. PL [Concomitant]
     Dosage: 1G THREE TIMES PER DAY
     Route: 048
  5. GASMOTIN [Concomitant]
     Dosage: 10MG TWICE PER DAY
     Route: 048
  6. SHAKUYAKU-KANZO-TO [Concomitant]
     Dosage: 2.5G THREE TIMES PER DAY
     Route: 048
  7. KIPRES [Concomitant]
     Dosage: 10MG PER DAY
     Route: 048
  8. VOLTAREN [Concomitant]
     Route: 054
  9. PAXIL [Concomitant]
     Dosage: 20MG TWICE PER DAY
     Route: 048
  10. MEILAX [Concomitant]
     Dosage: 1MG TWICE PER DAY
     Route: 048
  11. LEXOTAN [Concomitant]
     Route: 048
  12. HUSTAZOL [Concomitant]
     Dosage: 10MG THREE TIMES PER DAY
     Route: 048
  13. DEPROMEL [Concomitant]
     Dosage: 50MG TWICE PER DAY
     Route: 048
  14. SEDIEL [Concomitant]
     Dosage: 10MG THREE TIMES PER DAY
     Route: 048
  15. LANDSEN [Concomitant]
     Dosage: 1.5MG PER DAY
     Route: 048

REACTIONS (2)
  - HYPOKALAEMIA [None]
  - RHABDOMYOLYSIS [None]
